FAERS Safety Report 7212475-3 (Version None)
Quarter: 2010Q4

REPORT INFORMATION
  Report Type: 
  Country: None (occurrence: None)
  Receive Date: 20101227
  Receipt Date: 20101216
  Transmission Date: 20110411
  Serious: Yes (Hospitalization, Other)
  Sender: FDA-Public Use
  Company Number: 0215502

PATIENT
  Age: 74 Year
  Sex: Male

DRUGS (1)
  1. TACHOSIL [Suspect]
     Indication: PANCREATECTOMY
     Dates: start: 20100608, end: 20100608

REACTIONS (6)
  - ABDOMINAL ABSCESS [None]
  - ABDOMINAL PAIN [None]
  - C-REACTIVE PROTEIN INCREASED [None]
  - INFECTION [None]
  - LEUKOCYTOSIS [None]
  - PYREXIA [None]
